FAERS Safety Report 20363581 (Version 8)
Quarter: 2022Q4

REPORT INFORMATION
  Report Type: Report from Study
  Country: CO (occurrence: CO)
  Receive Date: 20220121
  Receipt Date: 20221206
  Transmission Date: 20230113
  Serious: Yes (Life-Threatening)
  Sender: FDA-Public Use
  Company Number: CO-NOVARTISPH-NVSC2022CO013037

PATIENT
  Age: 44 Year
  Sex: Female
  Weight: 58 kg

DRUGS (13)
  1. COSENTYX [Suspect]
     Active Substance: SECUKINUMAB
     Indication: Psoriatic arthropathy
     Dosage: 150MG, QMO (STARTED A YEAR AGO)
     Route: 058
     Dates: start: 2019
  2. COSENTYX [Suspect]
     Active Substance: SECUKINUMAB
     Dosage: 300 MG, QMO (STARTED A YEAR AGO)
     Route: 058
  3. COSENTYX [Suspect]
     Active Substance: SECUKINUMAB
     Dosage: UNK
     Route: 065
     Dates: start: 20220114
  4. COSENTYX [Suspect]
     Active Substance: SECUKINUMAB
     Dosage: 300 MG, QMO (AFTER 8 MONTHS OF TREATMENT)
     Route: 058
  5. COSENTYX [Suspect]
     Active Substance: SECUKINUMAB
     Dosage: 300 MG, QMO
     Route: 058
  6. DICLOFENAC [Concomitant]
     Active Substance: DICLOFENAC
     Indication: Arthralgia
     Dosage: 100 MG, QD
     Route: 048
  7. ACETAMINOPHEN [Concomitant]
     Active Substance: ACETAMINOPHEN
     Indication: Arthralgia
     Dosage: 500 MG, QD (STARTED 20 YEARS AGO)
     Route: 048
  8. PREDNISOLONE [Concomitant]
     Active Substance: PREDNISOLONE
     Indication: Psoriatic arthropathy
     Dosage: UNK (20 YEARS AGO)
     Route: 048
  9. PREDNISOLONE [Concomitant]
     Active Substance: PREDNISOLONE
     Indication: Antiinflammatory therapy
     Dosage: 5 MG (BEFORE SHE TOOK 2 TABLETS OF 5MG)
     Route: 065
     Dates: start: 202109
  10. PREDNISOLONE [Concomitant]
     Active Substance: PREDNISOLONE
     Dosage: UNK, QD (EVERY 24 HOURS) (SINCE 5 YEARS AGO)
     Route: 048
  11. LINAGLIPTIN [Concomitant]
     Active Substance: LINAGLIPTIN
     Indication: Diabetes mellitus
     Dosage: UNK (SINCE 2 YEARS), Q12H (EVERY 12 HOURS)
     Route: 048
  12. LOSARTAN [Concomitant]
     Active Substance: LOSARTAN
     Indication: Hypertension
     Dosage: 50 MG, QD
     Route: 048
     Dates: start: 202105
  13. LOSARTAN [Concomitant]
     Active Substance: LOSARTAN
     Dosage: UNK (SINCE 1 YEAR), Q12H (EVERY 12 HOURS)
     Route: 048

REACTIONS (16)
  - Blood glucose increased [Unknown]
  - Gastrointestinal bacterial overgrowth [Unknown]
  - Glycosylated haemoglobin increased [Unknown]
  - Gastritis [Recovering/Resolving]
  - Dyspepsia [Unknown]
  - Inflammation [Unknown]
  - Neck pain [Unknown]
  - Headache [Unknown]
  - Arthritis [Recovered/Resolved]
  - Arthritis [Unknown]
  - Pain [Unknown]
  - Urinary tract infection [Unknown]
  - Arthralgia [Unknown]
  - Hand deformity [Unknown]
  - Psoriasis [Recovered/Resolved]
  - Arthropathy [Unknown]

NARRATIVE: CASE EVENT DATE: 20210901
